FAERS Safety Report 7005816-3 (Version None)
Quarter: 2010Q3

REPORT INFORMATION
  Report Type: 
  Country: None (occurrence: None)
  Receive Date: 20100921
  Receipt Date: 20100913
  Transmission Date: 20110219
  Serious: Yes (Hospitalization)
  Sender: FDA-Public Use
  Company Number: ES-ELI_LILLY_AND_COMPANY-ES201009003482

PATIENT
  Age: 56 Year
  Sex: Male

DRUGS (1)
  1. HUMULIN N [Suspect]

REACTIONS (2)
  - HYPERGLYCAEMIA [None]
  - MEDICATION ERROR [None]
